FAERS Safety Report 20103214 (Version 1)
Quarter: 2021Q4

REPORT INFORMATION
  Report Type: Spontaneous
  Country: US (occurrence: US)
  Receive Date: 20211123
  Receipt Date: 20211123
  Transmission Date: 20220303
  Serious: No
  Sender: FDA-Public Use
  Company Number: US-Fresenius Medical Care Renal Therapies Group-FMC-2111-001700

PATIENT
  Sex: Male

DRUGS (1)
  1. DELFLEX [Suspect]
     Active Substance: CALCIUM CHLORIDE\DEXTROSE\MAGNESIUM CHLORIDE\SODIUM CHLORIDE\SODIUM LACTATE
     Indication: End stage renal disease
     Dosage: FILLS = 3; FILL VOLUME = 2200 ML; LAST FILL VOLUME = 0ML; TOTAL VOLUME = 6600 ML; TOTAL SLEEP TIME
     Route: 033

REACTIONS (2)
  - Bloody peritoneal effluent [Unknown]
  - Haemorrhage [Unknown]
